FAERS Safety Report 22065570 (Version 1)
Quarter: 2023Q1

REPORT INFORMATION
  Report Type: Report from Study
  Country: TR (occurrence: TR)
  Receive Date: 20230306
  Receipt Date: 20230306
  Transmission Date: 20230417
  Serious: Yes (Hospitalization)
  Sender: FDA-Public Use
  Company Number: TR-JNJFOC-20210960594

PATIENT
  Age: 66 Year
  Sex: Female
  Weight: 49 kg

DRUGS (10)
  1. AMIVANTAMAB [Suspect]
     Active Substance: AMIVANTAMAB
     Indication: Non-small cell lung cancer
     Route: 065
  2. ENOXAPARIN SODIUM [Concomitant]
     Active Substance: ENOXAPARIN SODIUM
     Indication: Pulmonary embolism
     Dosage: 10000 ANTI-XA IU/1,0
     Route: 058
     Dates: start: 20210626
  3. AVOBENZONE\OCTINOXATE [Concomitant]
     Active Substance: AVOBENZONE\OCTINOXATE
     Indication: Premedication
     Route: 061
     Dates: start: 20210709
  4. DOXYCYCLINE [Concomitant]
     Active Substance: DOXYCYCLINE
     Indication: Premedication
     Route: 048
     Dates: start: 20210709
  5. CLOBETASOL PROPIONATE [Concomitant]
     Active Substance: CLOBETASOL PROPIONATE
     Indication: Premedication
     Route: 061
     Dates: start: 20210709
  6. FUSIDIC ACID [Concomitant]
     Active Substance: FUSIDIC ACID
     Indication: Rash maculo-papular
     Route: 061
     Dates: start: 20210831
  7. CLINDAMYCIN [Concomitant]
     Active Substance: CLINDAMYCIN
     Indication: Rash maculo-papular
     Route: 061
     Dates: start: 20210831
  8. TRITICUM VULGARE [Concomitant]
     Indication: Rash maculo-papular
     Route: 061
     Dates: start: 20210831
  9. BETAMETHASONE;SALICYLIC ACID [Concomitant]
     Indication: Rash maculo-papular
     Route: 061
     Dates: start: 20210920
  10. BILASTINE [Concomitant]
     Active Substance: BILASTINE
     Indication: Rash maculo-papular
     Route: 048
     Dates: start: 20210920

REACTIONS (1)
  - Recall phenomenon [Recovering/Resolving]

NARRATIVE: CASE EVENT DATE: 20210930
